FAERS Safety Report 10094392 (Version 2)
Quarter: 2014Q2

REPORT INFORMATION
  Report Type: Spontaneous
  Country: CN (occurrence: None)
  Receive Date: 20140418
  Receipt Date: 20140513
  Transmission Date: 20141212
  Serious: Yes (Hospitalization)
  Sender: FDA-Public Use
  Company Number: VAL_03076_2014

PATIENT
  Sex: Female

DRUGS (2)
  1. ROCALTROL [Suspect]
     Indication: OSTEOPOROSIS
     Route: 048
     Dates: start: 201207
  2. ELCATONIN [Concomitant]

REACTIONS (5)
  - Dry mouth [None]
  - Pollakiuria [None]
  - Urinary tract infection [None]
  - Anal fissure [None]
  - Hyperhidrosis [None]
